FAERS Safety Report 8645459 (Version 4)
Quarter: 2012Q4

REPORT INFORMATION
  Report Type: Report from Study
  Country: DE (occurrence: DE)
  Receive Date: 20120702
  Receipt Date: 20121024
  Transmission Date: 20130627
  Serious: Yes (Hospitalization)
  Sender: FDA-Public Use
  Company Number: DE-UCBSA-055209

PATIENT
  Sex: Female
  Weight: 96 kg

DRUGS (14)
  1. CIMZIA [Suspect]
     Indication: RHEUMATOID ARTHRITIS
     Route: 058
     Dates: start: 20110330, end: 20120523
  2. NOVAMINSULFON [Concomitant]
     Indication: RHEUMATOID ARTHRITIS
     Dosage: AS NEEDED
     Dates: start: 200907
  3. FOSTER [Concomitant]
     Indication: RHEUMATOID ARTHRITIS
     Dates: start: 201004
  4. L-THYROXIN [Concomitant]
     Indication: HYPOTHYROIDISM
     Dates: start: 200507
  5. ATACAND [Concomitant]
     Indication: HYPERTENSION
     Dates: start: 200907
  6. METHOTREXATE [Concomitant]
     Indication: RHEUMATOID ARTHRITIS
     Dosage: QS
     Dates: start: 201105, end: 20120620
  7. METHOTREXATE [Concomitant]
     Indication: RHEUMATOID ARTHRITIS
     Dosage: QS
     Dates: start: 20120621
  8. PREDNISOLON [Concomitant]
     Indication: RHEUMATOID ARTHRITIS
     Dates: start: 201001, end: 20110605
  9. PREDNISOLON [Concomitant]
     Indication: RHEUMATOID ARTHRITIS
     Dates: start: 20110606
  10. VALORON [Concomitant]
     Indication: RHEUMATOID ARTHRITIS
     Dates: start: 201006, end: 20110620
  11. VALORON [Concomitant]
     Indication: RHEUMATOID ARTHRITIS
     Dates: start: 20110621
  12. SULFASALAZINE [Concomitant]
     Indication: RHEUMATOID ARTHRITIS
     Dates: start: 201011
  13. CELEBREX [Concomitant]
     Indication: RHEUMATOID ARTHRITIS
     Dates: start: 20100610
  14. PANTOZOL [Concomitant]
     Indication: RHEUMATOID ARTHRITIS
     Dates: start: 201001

REACTIONS (6)
  - Diverticulitis [Recovered/Resolved]
  - Nausea [Recovered/Resolved]
  - Diarrhoea [Recovered/Resolved]
  - Diverticulum [Recovered/Resolved]
  - Cystitis escherichia [Recovered/Resolved]
  - Abdominal pain lower [Recovered/Resolved with Sequelae]
